FAERS Safety Report 6861481-7 (Version None)
Quarter: 2010Q3

REPORT INFORMATION
  Report Type: 
  Country: None (occurrence: None)
  Receive Date: 20100715
  Receipt Date: 20100630
  Transmission Date: 20110219
  Serious: Yes (Hospitalization)
  Sender: FDA-Public Use
  Company Number: 2010002663

PATIENT
  Age: 61 Year
  Sex: Female

DRUGS (5)
  1. TARCEVA [Suspect]
     Indication: LUNG NEOPLASM MALIGNANT
     Dosage: 125 MG, QD, ORAL
     Route: 048
     Dates: start: 20091013
  2. ALIMTA [Concomitant]
  3. AVASTIN [Concomitant]
  4. CISPLATIN [Concomitant]
  5. TARCEVA [Suspect]

REACTIONS (2)
  - CHEST PAIN [None]
  - DYSPNOEA [None]
